FAERS Safety Report 7032107-7 (Version None)
Quarter: 2010Q4

REPORT INFORMATION
  Report Type: 
  Country: None (occurrence: None)
  Receive Date: 20101007
  Receipt Date: 20091102
  Transmission Date: 20110411
  Serious: Yes (Death, Hospitalization)
  Sender: FDA-Public Use
  Company Number: DE-BRISTOL-MYERS SQUIBB COMPANY-14846323

PATIENT
  Age: 62 Year
  Sex: Male
  Weight: 69 kg

DRUGS (3)
  1. CETUXIMAB [Suspect]
     Indication: NON-SMALL CELL LUNG CANCER STAGE IV
     Dosage: STRENGTH: 5MG/ML
     Route: 042
     Dates: start: 20091015, end: 20091029
  2. CARBOPLATIN [Suspect]
     Indication: NON-SMALL CELL LUNG CANCER STAGE IV
     Dosage: 1 DF = AUC5;DAY 1 OF 21;
     Route: 042
     Dates: start: 20091015, end: 20091015
  3. GEMCITABINE [Suspect]
     Indication: NON-SMALL CELL LUNG CANCER STAGE IV
     Dosage: DAY 1,8 OF 21-DAY CYCLE
     Route: 042
     Dates: start: 20091015, end: 20091022

REACTIONS (1)
  - SEPSIS [None]
